FAERS Safety Report 8831800 (Version 2)
Quarter: 2015Q1

REPORT INFORMATION
  Report Type: Report from Study
  Country: US (occurrence: US)
  Receive Date: 20121009
  Receipt Date: 20150204
  Transmission Date: 20150721
  Serious: Yes (Death, Hospitalization)
  Sender: FDA-Public Use
  Company Number: US-ROCHE-1137711

PATIENT
  Sex: Male
  Weight: 148 kg

DRUGS (30)
  1. BACTRIM [Concomitant]
     Active Substance: SULFAMETHOXAZOLE\TRIMETHOPRIM
     Route: 065
  2. CYCLOSPORIN [Concomitant]
     Active Substance: CYCLOSPORINE
  3. RITUXAN [Suspect]
     Active Substance: RITUXIMAB
     Route: 065
  4. GRANISETRON [Suspect]
     Active Substance: GRANISETRON
     Indication: PRODUCT USED FOR UNKNOWN INDICATION
     Route: 065
     Dates: start: 19980923, end: 19981125
  5. CYTOXAN [Concomitant]
     Active Substance: CYCLOPHOSPHAMIDE
     Route: 065
  6. VINCRISTINE [Concomitant]
     Active Substance: VINCRISTINE
     Route: 065
  7. ALLOPURINOL. [Concomitant]
     Active Substance: ALLOPURINOL
     Dosage: DAILY
     Route: 065
  8. DECADRON [Concomitant]
     Active Substance: DEXAMETHASONE
  9. LASIX [Concomitant]
     Active Substance: FUROSEMIDE
  10. AUGMENTIN [Concomitant]
     Active Substance: AMOXICILLIN\CLAVULANATE POTASSIUM
     Dosage: FOR 7 DAYS
     Route: 065
  11. RITUXAN [Suspect]
     Active Substance: RITUXIMAB
     Indication: LYMPHOCYTIC LEUKAEMIA
     Route: 042
  12. ACV [Concomitant]
  13. LEVAQUIN [Concomitant]
     Active Substance: LEVOFLOXACIN
     Route: 065
  14. SEPTRA [Concomitant]
     Active Substance: SULFAMETHOXAZOLE\TRIMETHOPRIM
  15. ZANTAC [Concomitant]
     Active Substance: RANITIDINE HYDROCHLORIDE
  16. BENADRYL [Concomitant]
     Active Substance: DIPHENHYDRAMINE HYDROCHLORIDE
     Route: 065
  17. LIDOCAINE. [Concomitant]
     Active Substance: LIDOCAINE
     Route: 065
  18. NAPROXEN. [Suspect]
     Active Substance: NAPROXEN
     Indication: PRODUCT USED FOR UNKNOWN INDICATION
     Dosage: IN NIGHT AS NEEDED
     Route: 065
  19. CIPROFLOXACIN. [Concomitant]
     Active Substance: CIPROFLOXACIN
     Indication: UPPER RESPIRATORY TRACT CONGESTION
     Route: 065
  20. IMMUNOGLOBULIN [Concomitant]
     Active Substance: HUMAN IMMUNOGLOBULIN G
  21. CAMPATH [Concomitant]
     Active Substance: ALEMTUZUMAB
  22. FLAGYL [Concomitant]
     Active Substance: METRONIDAZOLE\METRONIDAZOLE HYDROCHLORIDE
  23. CYCLOSPORIN [Concomitant]
     Active Substance: CYCLOSPORINE
     Route: 065
  24. PREDNISOLONE. [Concomitant]
     Active Substance: PREDNISOLONE
  25. ALLOPURINOL. [Concomitant]
     Active Substance: ALLOPURINOL
     Indication: TUMOUR LYSIS SYNDROME
     Route: 065
  26. CHLORAMBUCIL [Concomitant]
     Active Substance: CHLORAMBUCIL
  27. CYTOXAN [Concomitant]
     Active Substance: CYCLOPHOSPHAMIDE
     Route: 065
  28. EPOGEN [Concomitant]
     Active Substance: ERYTHROPOIETIN
     Dosage: DAILY
     Route: 065
  29. PRILOSEC [Concomitant]
     Active Substance: OMEPRAZOLE MAGNESIUM
  30. RITUXAN [Suspect]
     Active Substance: RITUXIMAB
     Indication: CHRONIC LYMPHOCYTIC LEUKAEMIA
     Dosage: FOR 4 WEEKS
     Route: 042
     Dates: start: 199908

REACTIONS (22)
  - Breath sounds abnormal [Unknown]
  - Weight decreased [Unknown]
  - Oropharyngeal pain [Unknown]
  - Chest wall abscess [Unknown]
  - Rhonchi [Unknown]
  - Pyrexia [Unknown]
  - Pleural effusion [Unknown]
  - Wheezing [Unknown]
  - Neuropathy peripheral [Unknown]
  - Death [Fatal]
  - Chronic sinusitis [Unknown]
  - Hypoaesthesia [Unknown]
  - Night sweats [Unknown]
  - Thrombocytopenia [Unknown]
  - Oedema peripheral [Unknown]
  - Acquired diaphragmatic eventration [Unknown]
  - Dyspnoea [Unknown]
  - Diarrhoea [Unknown]
  - Decreased appetite [Unknown]
  - Haemolytic anaemia [Unknown]
  - Hyperglycaemia [Unknown]
  - Fatigue [Unknown]
